FAERS Safety Report 23565353 (Version 1)
Quarter: 2024Q1

REPORT INFORMATION
  Report Type: Spontaneous
  Country: US (occurrence: None)
  Receive Date: 20240224
  Receipt Date: 20240224
  Transmission Date: 20240410
  Serious: Yes (Other)
  Sender: FDA-Public Use
  Company Number: None

PATIENT
  Age: 32 Year
  Sex: Female
  Weight: 94.05 kg

DRUGS (1)
  1. BUPRENORPHINE [Suspect]
     Active Substance: BUPRENORPHINE
     Indication: Pain
     Dates: start: 20240108, end: 20240115

REACTIONS (3)
  - Dermatitis [None]
  - Application site dermatitis [None]
  - Application site scar [None]

NARRATIVE: CASE EVENT DATE: 20240115
